FAERS Safety Report 8712999 (Version 2)
Quarter: 2013Q2

REPORT INFORMATION
  Report Type: Report from Study
  Country: MX (occurrence: MX)
  Receive Date: 20120808
  Receipt Date: 20130506
  Transmission Date: 20140414
  Serious: Yes (Death, Other)
  Sender: FDA-Public Use
  Company Number: PHHY2012MX068152

PATIENT
  Age: 65 Year
  Sex: Male

DRUGS (2)
  1. CO-DIOVAN [Suspect]
     Indication: HYPERTENSION
     Dosage: 2  TABLETS (160/12.5 MG) DAILY
     Route: 048
     Dates: start: 2010
  2. GALVUS MET [Suspect]
     Dosage: 1 DF, EVERY 6 HOURS
     Dates: start: 2010

REACTIONS (1)
  - Myocardial infarction [Fatal]
